FAERS Safety Report 5904882-3 (Version None)
Quarter: 2008Q4

REPORT INFORMATION
  Report Type: 
  Country: None (occurrence: None)
  Receive Date: 20081001
  Receipt Date: 20080926
  Transmission Date: 20090506
  Serious: Yes (Other)
  Sender: FDA-Public Use
  Company Number: A0750073A

PATIENT
  Age: 55 Year
  Sex: Female

DRUGS (10)
  1. AVANDIA [Suspect]
     Indication: DIABETES MELLITUS
     Route: 048
     Dates: start: 20060124, end: 20061231
  2. AVANDAMET [Suspect]
     Indication: DIABETES MELLITUS
     Route: 048
     Dates: start: 20060107, end: 20060123
  3. METFORMIN HCL [Concomitant]
  4. DIABETA [Concomitant]
  5. LIPITOR [Concomitant]
  6. PAROXETINE HCL [Concomitant]
  7. SYNTHROID [Concomitant]
  8. DIOVAN [Concomitant]
  9. PLAVIX [Concomitant]
  10. OMEPRAZOLE [Concomitant]

REACTIONS (1)
  - CEREBROVASCULAR ACCIDENT [None]
